FAERS Safety Report 9725317 (Version 1)
Quarter: 2013Q4

REPORT INFORMATION
  Report Type: Spontaneous
  Country: KR (occurrence: KR)
  Receive Date: 20131203
  Receipt Date: 20131203
  Transmission Date: 20140711
  Serious: Yes (Hospitalization)
  Sender: FDA-Public Use
  Company Number: KR-MYLANLABS-2013S1026346

PATIENT
  Age: 32 Year
  Sex: Male
  Weight: 66 kg

DRUGS (5)
  1. FENTANYL [Suspect]
     Indication: ANAESTHESIA
     Route: 042
  2. MESALAZINE [Concomitant]
     Indication: COLITIS ULCERATIVE
     Dosage: DAILY
     Route: 048
  3. METFORMIN [Concomitant]
     Indication: DIABETES MELLITUS
     Route: 065
  4. THIOPENTAL SODIUM [Concomitant]
     Indication: INDUCTION OF ANAESTHESIA
     Route: 042
  5. VECURONIUM BROMIDE [Concomitant]
     Indication: NEUROMUSCULAR BLOCKADE
     Route: 065

REACTIONS (3)
  - Cough [Recovering/Resolving]
  - Pneumonia aspiration [Recovering/Resolving]
  - Vomiting [Recovered/Resolved]
